FAERS Safety Report 4795214-5 (Version None)
Quarter: 2005Q4

REPORT INFORMATION
  Report Type: 
  Country: None (occurrence: None)
  Receive Date: 20051012
  Receipt Date: 20050818
  Transmission Date: 20060501
  Serious: Yes (Hospitalization)
  Sender: FDA-Public Use
  Company Number: FR-BRISTOL-MYERS SQUIBB COMPANY-13091004

PATIENT
  Age: 82 Year
  Sex: Female

DRUGS (6)
  1. ERBITUX [Suspect]
     Indication: COLORECTAL CANCER
     Route: 042
     Dates: start: 20041201, end: 20050509
  2. CAMPTOSAR [Suspect]
     Indication: COLORECTAL CANCER
     Route: 042
     Dates: start: 20041118, end: 20050518
  3. TOLEXINE [Suspect]
     Indication: SKIN REACTION
     Route: 048
     Dates: start: 20050228, end: 20050606
  4. DIGOXINE NATIVELLE [Concomitant]
  5. NORDAZ [Concomitant]
     Route: 048
  6. LYTOS [Concomitant]
     Route: 048
     Dates: start: 20050707, end: 20050720

REACTIONS (2)
  - ERYTHEMA [None]
  - EYELID OEDEMA [None]
